FAERS Safety Report 13150271 (Version 1)
Quarter: 2017Q1

REPORT INFORMATION
  Report Type: Report from Study
  Country: AT (occurrence: AT)
  Receive Date: 20170125
  Receipt Date: 20170125
  Transmission Date: 20170428
  Serious: Yes (Death, Other)
  Sender: FDA-Public Use
  Company Number: AT-MYLANLABS-2017M1003573

PATIENT

DRUGS (2)
  1. DOXEPIN [Interacting]
     Active Substance: DOXEPIN
     Indication: PRODUCT USED FOR UNKNOWN INDICATION
     Route: 065
  2. CITALOPRAM [Suspect]
     Active Substance: CITALOPRAM HYDROBROMIDE
     Indication: PRODUCT USED FOR UNKNOWN INDICATION
     Dosage: INITIAL DOSE UNKNOWN, INCREASED TO 20 MG/DAY
     Route: 065

REACTIONS (3)
  - Electrocardiogram QT prolonged [Fatal]
  - Bundle branch block left [Fatal]
  - Drug interaction [Fatal]
